FAERS Safety Report 8602692-X (Version None)
Quarter: 2012Q2

REPORT INFORMATION
  Report Type: 
  Country: None (occurrence: None)
  Receive Date: 20120423
  Receipt Date: 20090629
  Transmission Date: 20120825
  Serious: Yes (Other)
  Sender: FDA-Public Use
  Company Number: PHEH2009US06022

PATIENT
  Sex: Female

DRUGS (2)
  1. FEMARA [Suspect]
     Dates: start: 20090508
  2. ARIMIDEX [Suspect]

REACTIONS (5)
  - DEPRESSION [None]
  - BONE PAIN [None]
  - WEIGHT INCREASED [None]
  - DIZZINESS [None]
  - ARTHRALGIA [None]
